FAERS Safety Report 13484288 (Version 2)
Quarter: 2017Q2

REPORT INFORMATION
  Report Type: Spontaneous
  Country: US (occurrence: US)
  Receive Date: 20170426
  Receipt Date: 20170427
  Transmission Date: 20170830
  Serious: No
  Sender: FDA-Public Use
  Company Number: US-009507513-1704USA012505

PATIENT

DRUGS (2)
  1. INTRON A [Suspect]
     Active Substance: INTERFERON ALFA-2B
     Dosage: 300 000 UNITS, 3 TIMES WEEKLY
     Route: 023
  2. GILOTRIF [Suspect]
     Active Substance: AFATINIB

REACTIONS (3)
  - Diarrhoea [Unknown]
  - Incorrect route of drug administration [Unknown]
  - Skin fissures [Unknown]
